FAERS Safety Report 19964152 (Version 1)
Quarter: 2021Q4

REPORT INFORMATION
  Report Type: Spontaneous
  Country: US (occurrence: US)
  Receive Date: 20211018
  Receipt Date: 20211018
  Transmission Date: 20220303
  Serious: No
  Sender: FDA-Public Use
  Company Number: None

PATIENT
  Age: 75 Year
  Sex: Female
  Weight: 58.05 kg

DRUGS (1)
  1. IBRANCE [Suspect]
     Active Substance: PALBOCICLIB
     Indication: Breast cancer
     Dosage: ?          OTHER FREQUENCY:QD 3WKS ON 1WKSOFF;
     Route: 048

REACTIONS (1)
  - Fatigue [None]

NARRATIVE: CASE EVENT DATE: 20211018
